FAERS Safety Report 18213839 (Version 1)
Quarter: 2020Q3

REPORT INFORMATION
  Report Type: Spontaneous
  Country: US (occurrence: US)
  Receive Date: 20200831
  Receipt Date: 20200831
  Transmission Date: 20201103
  Serious: Yes (Death, Hospitalization)
  Sender: FDA-Public Use
  Company Number: None

PATIENT
  Age: 85 Year
  Sex: Male
  Weight: 79 kg

DRUGS (2)
  1. IBRUTINIB (IBRUTINIB) 280MG TAB, ORAL [Suspect]
     Active Substance: IBRUTINIB
     Indication: BACTERIAL SEPSIS
     Route: 048
     Dates: start: 20191016, end: 20200722
  2. IBRUTINIB (IBRUTINIB) 280MG TAB, ORAL [Suspect]
     Active Substance: IBRUTINIB
     Indication: PAIN
     Route: 048
     Dates: start: 20191016, end: 20200722

REACTIONS (6)
  - Oedema peripheral [None]
  - Nausea [None]
  - Bacteraemia [None]
  - Pyrexia [None]
  - Arthralgia [None]
  - Myalgia [None]

NARRATIVE: CASE EVENT DATE: 20200720
